FAERS Safety Report 9332574 (Version 2)
Quarter: 2013Q3

REPORT INFORMATION
  Report Type: Spontaneous
  Country: FR (occurrence: FR)
  Receive Date: 20130606
  Receipt Date: 20130808
  Transmission Date: 20140515
  Serious: Yes (Hospitalization, Other)
  Sender: FDA-Public Use
  Company Number: FR-JNJFOC-20130521990

PATIENT
  Age: 21 Year
  Sex: Female

DRUGS (9)
  1. REMICADE [Suspect]
     Indication: CROHN^S DISEASE
     Dosage: 100 MG FOR 15 INJECTIONS
     Route: 042
     Dates: end: 200603
  2. REMICADE [Suspect]
     Indication: CROHN^S DISEASE
     Route: 042
     Dates: start: 20130307
  3. REMICADE [Suspect]
     Indication: CROHN^S DISEASE
     Dosage: 310 MG
     Route: 042
     Dates: start: 20130122, end: 20130122
  4. REMICADE [Suspect]
     Indication: CROHN^S DISEASE
     Route: 042
     Dates: start: 201302
  5. HUMIRA [Suspect]
     Indication: CROHN^S DISEASE
     Route: 065
  6. HYDROCORTISONE [Concomitant]
     Indication: PREMEDICATION
     Route: 042
     Dates: start: 20130122
  7. SOLUPRED [Concomitant]
     Indication: PREMEDICATION
     Dosage: D-2, D-1, D-0
     Route: 065
  8. ALPRAZOLAM [Concomitant]
     Indication: PREMEDICATION
     Dosage: IN THE EVENING AT DAY-2, DAY-1, DAY-0
     Route: 065
  9. ATARAX [Concomitant]
     Indication: PREMEDICATION
     Route: 065

REACTIONS (8)
  - Arthralgia [Recovered/Resolved]
  - Hyperthermia [Recovered/Resolved]
  - Tuberculosis [Unknown]
  - Rash [Recovered/Resolved]
  - Dyspnoea [Recovered/Resolved]
  - Vomiting [Recovered/Resolved]
  - Chest pain [Unknown]
  - Infusion related reaction [Unknown]
